FAERS Safety Report 8136633-9 (Version None)
Quarter: 2012Q1

REPORT INFORMATION
  Report Type: 
  Country: None (occurrence: None)
  Receive Date: 20120214
  Receipt Date: 20120202
  Transmission Date: 20120608
  Serious: Yes (Death, Hospitalization)
  Sender: FDA-Public Use
  Company Number: US-ELI_LILLY_AND_COMPANY-US201202000790

PATIENT
  Sex: Female

DRUGS (10)
  1. CYMBALTA [Suspect]
     Dosage: 60 MG, QD
     Dates: start: 20080101
  2. SINEMET [Concomitant]
  3. CYMBALTA [Suspect]
     Dosage: 90 MG, UNK
  4. COMTAN [Concomitant]
  5. DIURETICS [Concomitant]
  6. SYNTHROID [Concomitant]
  7. METFORMIN HCL [Concomitant]
  8. LOTENSIN [Concomitant]
  9. NEUROTIN                           /00949202/ [Concomitant]
  10. CYMBALTA [Suspect]
     Dosage: 60 MG, QD

REACTIONS (6)
  - DEATH [None]
  - ENCEPHALOPATHY [None]
  - ADVERSE EVENT [None]
  - SEROTONIN SYNDROME [None]
  - MYDRIASIS [None]
  - PYREXIA [None]
